FAERS Safety Report 20643152 (Version 1)
Quarter: 2022Q1

REPORT INFORMATION
  Report Type: Spontaneous
  Country: CN (occurrence: CN)
  Receive Date: 20220328
  Receipt Date: 20220328
  Transmission Date: 20220423
  Serious: Yes (Other)
  Sender: FDA-Public Use
  Company Number: CN-BAYER-2022A042436

PATIENT
  Age: 58 Year
  Sex: Male

DRUGS (4)
  1. NEXAVAR [Suspect]
     Active Substance: SORAFENIB
     Indication: Hepatocellular carcinoma
     Dosage: 0.4 G, BID
     Route: 048
     Dates: start: 20210813, end: 2021
  2. FLUOROURACIL [Concomitant]
     Active Substance: FLUOROURACIL
     Dosage: UNK
     Dates: start: 20210813
  3. LOBAPLATIN [Concomitant]
     Active Substance: LOBAPLATIN
     Dosage: UNK
     Dates: start: 20210813
  4. EPIRUBICIN [Concomitant]
     Active Substance: EPIRUBICIN
     Dosage: UNK
     Dates: start: 20210813

REACTIONS (1)
  - Hepatocellular carcinoma [None]

NARRATIVE: CASE EVENT DATE: 20211015
